FAERS Safety Report 16753781 (Version 1)
Quarter: 2019Q3

REPORT INFORMATION
  Report Type: Spontaneous
  Country: ES (occurrence: BR)
  Receive Date: 20190829
  Receipt Date: 20190829
  Transmission Date: 20191005
  Serious: Yes (Other)
  Sender: FDA-Public Use
  Company Number: ES-LUPIN PHARMACEUTICALS INC.-2019-05512

PATIENT
  Age: 44 Year
  Sex: Male

DRUGS (8)
  1. FLUOXETINE [Suspect]
     Active Substance: FLUOXETINE HYDROCHLORIDE
     Indication: OBSESSIVE-COMPULSIVE DISORDER
     Dosage: 80 MILLIGRAM, QD
     Route: 065
  2. OLANZAPINE. [Suspect]
     Active Substance: OLANZAPINE
     Dosage: 20 MILLIGRAM, QD
     Route: 065
  3. CLOMIPRAMINE [Suspect]
     Active Substance: CLOMIPRAMINE
     Indication: OBSESSIVE-COMPULSIVE DISORDER
     Dosage: 75 MILLIGRAM, QD
     Route: 065
  4. OLANZAPINE. [Suspect]
     Active Substance: OLANZAPINE
     Indication: OBSESSIVE-COMPULSIVE DISORDER
     Dosage: 25 MILLIGRAM, QD
     Route: 065
  5. CLOMIPRAMINE [Suspect]
     Active Substance: CLOMIPRAMINE
     Dosage: 125 MILLIGRAM, QD
     Route: 065
  6. CLONAZEPAM. [Suspect]
     Active Substance: CLONAZEPAM
     Dosage: 4 MILLIGRAM, QD
     Route: 065
  7. LITHIUM. [Suspect]
     Active Substance: LITHIUM
     Indication: OBSESSIVE-COMPULSIVE DISORDER
     Dosage: 1200 MILLIGRAM, QD
     Route: 065
  8. CLONAZEPAM. [Suspect]
     Active Substance: CLONAZEPAM
     Indication: OBSESSIVE-COMPULSIVE DISORDER
     Dosage: 2 MILLIGRAM, QD
     Route: 065

REACTIONS (4)
  - Tremor [Unknown]
  - Long QT syndrome [Unknown]
  - Arrhythmia [Unknown]
  - Anxiety [Unknown]
